FAERS Safety Report 7955322-4 (Version None)
Quarter: 2011Q4

REPORT INFORMATION
  Report Type: 
  Country: None (occurrence: None)
  Receive Date: 20111202
  Receipt Date: 20111121
  Transmission Date: 20120403
  Serious: Yes (Hospitalization)
  Sender: FDA-Public Use
  Company Number: US-ELI_LILLY_AND_COMPANY-US201111007837

PATIENT
  Age: 75 Year
  Sex: Male

DRUGS (2)
  1. LEVEMIR [Concomitant]
     Dosage: UNK
  2. HUMALOG [Suspect]
     Indication: TYPE 2 DIABETES MELLITUS
     Dosage: UNK, PRN
     Dates: start: 20040101

REACTIONS (6)
  - SURGERY [None]
  - EYE OPERATION [None]
  - DIABETES MELLITUS [None]
  - BLOOD GLUCOSE INCREASED [None]
  - WEIGHT LOSS POOR [None]
  - INCREASED APPETITE [None]
